FAERS Safety Report 21911192 (Version 2)
Quarter: 2023Q1

REPORT INFORMATION
  Report Type: Spontaneous
  Country: BR (occurrence: BR)
  Receive Date: 20230125
  Receipt Date: 20230209
  Transmission Date: 20230418
  Serious: Yes (Hospitalization, Other)
  Sender: FDA-Public Use
  Company Number: BR-TAKEDA-2023TUS000223

PATIENT
  Age: 60 Year
  Sex: Female
  Weight: 69.7 kg

DRUGS (4)
  1. ADCETRIS [Suspect]
     Active Substance: BRENTUXIMAB VEDOTIN
     Indication: Cutaneous T-cell lymphoma
     Dosage: 138.6 MILLIGRAM, Q3WEEKS
     Route: 042
     Dates: start: 20220126, end: 20220622
  2. CYCLOPHOSPHAMIDE [Suspect]
     Active Substance: CYCLOPHOSPHAMIDE
     Indication: Cutaneous T-cell lymphoma
     Dosage: 750 MILLIGRAM/SQ. METER, Q3WEEKS
     Route: 042
     Dates: start: 20220126
  3. DOXORUBICIN HYDROCHLORIDE [Suspect]
     Active Substance: DOXORUBICIN HYDROCHLORIDE
     Indication: Cutaneous T-cell lymphoma
     Dosage: 50 MILLIGRAM/SQ. METER, Q3WEEKS
     Route: 042
     Dates: start: 20220126, end: 20220622
  4. PREDNISONE [Suspect]
     Active Substance: PREDNISONE
     Indication: Cutaneous T-cell lymphoma
     Dosage: UNK UNK, Q3WEEKS
     Route: 048
     Dates: start: 20220126, end: 20220622

REACTIONS (4)
  - Pancreatitis acute [Recovered/Resolved]
  - Blood disorder [Unknown]
  - Abdominal pain [Unknown]
  - Febrile neutropenia [Recovered/Resolved]

NARRATIVE: CASE EVENT DATE: 20220129
